FAERS Safety Report 7723885-X (Version None)
Quarter: 2011Q3

REPORT INFORMATION
  Report Type: 
  Country: None (occurrence: None)
  Receive Date: 20110901
  Receipt Date: 20110822
  Transmission Date: 20111222
  Serious: Yes (Hospitalization, Other)
  Sender: FDA-Public Use
  Company Number: HK-TYCO HEALTHCARE/MALLINCKRODT-T201101616

PATIENT
  Age: 21 Year
  Sex: Female

DRUGS (1)
  1. METHADOSE [Suspect]
     Route: 048

REACTIONS (8)
  - ACCIDENTAL OVERDOSE [None]
  - ELECTROCARDIOGRAM QT PROLONGED [None]
  - ELECTROCARDIOGRAM T WAVE INVERSION [None]
  - PNEUMONIA [None]
  - ELECTROCARDIOGRAM ST SEGMENT ELEVATION [None]
  - VENTRICULAR EXTRASYSTOLES [None]
  - HYPOGLYCAEMIA [None]
  - ELECTROCARDIOGRAM ST SEGMENT DEPRESSION [None]
